FAERS Safety Report 9785356 (Version 1)
Quarter: 2013Q4

REPORT INFORMATION
  Report Type: Spontaneous
  Country: US (occurrence: US)
  Receive Date: 20131227
  Receipt Date: 20131227
  Transmission Date: 20140711
  Serious: Yes (Other)
  Sender: FDA-Public Use
  Company Number: US-JNJFOC-20131211335

PATIENT
  Age: 76 Year
  Sex: Male

DRUGS (2)
  1. DOXORUBICIN [Suspect]
     Indication: THERAPEUTIC EMBOLISATION
     Route: 013
  2. DOXORUBICIN [Suspect]
     Indication: HEPATOCELLULAR CARCINOMA
     Route: 013

REACTIONS (3)
  - Pulmonary infarction [Unknown]
  - Off label use [Unknown]
  - Incorrect route of drug administration [Unknown]
